FAERS Safety Report 13056740 (Version 1)
Quarter: 2016Q4

REPORT INFORMATION
  Report Type: Spontaneous
  Country: US (occurrence: US)
  Receive Date: 20161222
  Receipt Date: 20161222
  Transmission Date: 20170207
  Serious: No
  Sender: FDA-Public Use
  Company Number: US-BIOMARINAP-US-2016-109688

PATIENT
  Sex: Female
  Weight: 81.5 kg

DRUGS (2)
  1. KUVAN [Suspect]
     Active Substance: SAPROPTERIN DIHYDROCHLORIDE
  2. KUVAN [Suspect]
     Active Substance: SAPROPTERIN DIHYDROCHLORIDE
     Indication: PRODUCT USED FOR UNKNOWN INDICATION
     Dosage: 1500 MG, QD
     Route: 065
     Dates: start: 20150209, end: 201602

REACTIONS (3)
  - Diarrhoea [Recovering/Resolving]
  - Proctalgia [Recovering/Resolving]
  - Gastrointestinal pain [Recovering/Resolving]
